FAERS Safety Report 9899174 (Version 2)
Quarter: 2014Q1

REPORT INFORMATION
  Report Type: Spontaneous
  Country: US (occurrence: US)
  Receive Date: 20140214
  Receipt Date: 20140214
  Transmission Date: 20141002
  Serious: No
  Sender: FDA-Public Use
  Company Number: US-GILEAD-2011-0046087

PATIENT
  Sex: Male

DRUGS (10)
  1. LETAIRIS [Suspect]
     Indication: PULMONARY HYPERTENSION
     Dosage: 5 MG, UNK
     Route: 048
     Dates: start: 20111014
  2. LETAIRIS [Suspect]
     Indication: PULMONARY FIBROSIS
  3. IMDUR [Concomitant]
  4. SPIRIVA [Concomitant]
  5. LASIX                              /00032601/ [Concomitant]
  6. HYDROCODONE [Concomitant]
  7. BACLOFEN [Concomitant]
  8. CYMBALTA [Concomitant]
  9. XANAX [Concomitant]
  10. KCL [Concomitant]

REACTIONS (1)
  - Syncope [Not Recovered/Not Resolved]
